FAERS Safety Report 14804139 (Version 1)
Quarter: 2018Q2

REPORT INFORMATION
  Report Type: Spontaneous
  Country: GB (occurrence: GB)
  Receive Date: 20180425
  Receipt Date: 20180425
  Transmission Date: 20180711
  Serious: Yes (Disabling)
  Sender: FDA-Public Use
  Company Number: GB-CONCORDIA PHARMACEUTICALS INC.-E2B_00011309

PATIENT
  Age: 79 Year
  Sex: Female

DRUGS (12)
  1. PREDNISOLONE. [Suspect]
     Active Substance: PREDNISOLONE
     Indication: ARTHRITIS BACTERIAL
     Route: 048
  2. HYDROCORTISONE. [Concomitant]
     Active Substance: HYDROCORTISONE
     Dosage: SWITCHED AS PER RHEUMATOLOGY.
     Route: 042
  3. FUROSEMIDE. [Concomitant]
     Active Substance: FUROSEMIDE
     Dosage: MORNING. ACUTE.
     Dates: start: 20180302
  4. BISOPROLOL [Concomitant]
     Active Substance: BISOPROLOL
     Dosage: MORNING
  5. OLANZAPINE. [Concomitant]
     Active Substance: OLANZAPINE
     Dosage: NIGHT.
  6. PARACETAMOL [Concomitant]
     Active Substance: ACETAMINOPHEN
  7. SODIUM FUSIDATE [Concomitant]
     Active Substance: FUSIDATE SODIUM
  8. FLUCLOXACILLIN [Concomitant]
     Active Substance: FLUCLOXACILLIN
  9. CETRABEN EMOLLIENT CREAM [Concomitant]
  10. CALCICHEW D3 [Concomitant]
     Active Substance: CALCIUM\CHOLECALCIFEROL
  11. LANSOPRAZOLE. [Concomitant]
     Active Substance: LANSOPRAZOLE
     Dosage: MORNING
  12. ALENDRONIC ACID [Concomitant]
     Active Substance: ALENDRONIC ACID
     Dosage: SUNDAY MORNING

REACTIONS (1)
  - Mania [Recovering/Resolving]
